FAERS Safety Report 8019366-9 (Version None)
Quarter: 2012Q1

REPORT INFORMATION
  Report Type: 
  Country: None (occurrence: None)
  Receive Date: 20120103
  Receipt Date: 20110126
  Transmission Date: 20120608
  Serious: Yes (Other)
  Sender: FDA-Public Use
  Company Number: TR-GENZYME-THYM-1002170

PATIENT
  Age: 13 Year
  Sex: Female

DRUGS (5)
  1. CYCLOSPORINE [Concomitant]
     Indication: APLASTIC ANAEMIA
  2. DANAZOL [Concomitant]
     Indication: APLASTIC ANAEMIA
  3. THYMOGLOBULIN [Suspect]
     Indication: RENAL TRANSPLANT
     Route: 065
  4. PREDNISOLONE [Concomitant]
     Indication: APLASTIC ANAEMIA
  5. FILGRASTIM [Concomitant]
     Indication: APLASTIC ANAEMIA

REACTIONS (1)
  - POSTERIOR REVERSIBLE ENCEPHALOPATHY SYNDROME [None]
